FAERS Safety Report 8234369-7 (Version None)
Quarter: 2012Q1

REPORT INFORMATION
  Report Type: 
  Country: None (occurrence: None)
  Receive Date: 20120326
  Receipt Date: 20120323
  Transmission Date: 20120608
  Serious: Yes (Hospitalization)
  Sender: FDA-Public Use
  Company Number: CN-ROCHE-1052238

PATIENT
  Age: 26 Year
  Sex: Female
  Weight: 30 kg

DRUGS (2)
  1. MYCOPHENOLATE MOFETIL (CELLCEPT) [Suspect]
     Indication: RENAL TRANSPLANT
     Route: 048
     Dates: start: 20070315
  2. TACROLIMUS (NON-ROCHE/NON-COMPARATOR) [Concomitant]
     Indication: RENAL TRANSPLANT
     Route: 048
     Dates: start: 20070315

REACTIONS (3)
  - CHRONIC ALLOGRAFT NEPHROPATHY [None]
  - KIDNEY TRANSPLANT REJECTION [None]
  - ANAEMIA [None]
